FAERS Safety Report 12620980 (Version 1)
Quarter: 2016Q3

REPORT INFORMATION
  Report Type: Spontaneous
  Country: US (occurrence: US)
  Receive Date: 20160804
  Receipt Date: 20160804
  Transmission Date: 20161109
  Serious: Yes (Disabling)
  Sender: FDA-Public Use
  Company Number: PHEH2016US019122

PATIENT
  Sex: Female
  Weight: 61.23 kg

DRUGS (1)
  1. FEMARA [Suspect]
     Active Substance: LETROZOLE
     Indication: BREAST CANCER
     Dosage: 2.5 MG, QD
     Route: 048
     Dates: start: 20151109

REACTIONS (3)
  - Abdominal pain [Unknown]
  - Lactose intolerance [Not Recovered/Not Resolved]
  - Headache [Unknown]
